APPROVED DRUG PRODUCT: MUPIROCIN
Active Ingredient: MUPIROCIN CALCIUM
Strength: EQ 2% BASE
Dosage Form/Route: CREAM;TOPICAL
Application: A213076 | Product #001 | TE Code: AB
Applicant: ENCUBE ETHICALS PRIVATE LTD
Approved: Aug 31, 2021 | RLD: No | RS: No | Type: RX